FAERS Safety Report 17238033 (Version 1)
Quarter: 2020Q1

REPORT INFORMATION
  Report Type: Spontaneous
  Country: US (occurrence: US)
  Receive Date: 20200106
  Receipt Date: 20200106
  Transmission Date: 20200409
  Serious: No
  Sender: FDA-Public Use
  Company Number: US-PACIRA-201900112

PATIENT

DRUGS (2)
  1. MARCAINE [Concomitant]
     Active Substance: BUPIVACAINE HYDROCHLORIDE
     Indication: NERVE BLOCK
     Dosage: DOSAGE UNKNOWN, IN A SEPARATE SYRINGE AT A DIFFERENT LOCATION SITE THAN THE EXPAREL
  2. EXPAREL [Suspect]
     Active Substance: BUPIVACAINE
     Indication: NERVE BLOCK
     Dosage: EXPAND EXPAREL WITH NORMAL SALINE TO 150 CC

REACTIONS (2)
  - Rash [Recovered/Resolved]
  - Off label use [Unknown]
